FAERS Safety Report 8847912 (Version 1)
Quarter: 2012Q4

REPORT INFORMATION
  Report Type: Report from Study
  Country: GB (occurrence: GB)
  Receive Date: 20121018
  Receipt Date: 20121018
  Transmission Date: 20130627
  Serious: Yes (Hospitalization)
  Sender: FDA-Public Use
  Company Number: GB-ROCHE-1146629

PATIENT
  Age: 88 Year
  Sex: Male

DRUGS (6)
  1. RANIBIZUMAB [Suspect]
     Indication: AGE-RELATED MACULAR DEGENERATION
     Route: 050
     Dates: start: 20090326
  2. RANIBIZUMAB [Suspect]
     Route: 050
     Dates: start: 20120517
  3. WARFARIN [Suspect]
     Indication: AORTIC VALVE REPLACEMENT
     Route: 065
     Dates: start: 2010
  4. DIGITOXIN [Concomitant]
     Route: 065
     Dates: start: 2009, end: 20120609
  5. SIMVASTATIN [Concomitant]
     Route: 065
     Dates: start: 2009
  6. LACIDIPINE [Concomitant]
     Route: 065
     Dates: start: 2009, end: 20120609

REACTIONS (1)
  - Haemorrhagic stroke [Recovering/Resolving]
